FAERS Safety Report 11278294 (Version 1)
Quarter: 2015Q3

REPORT INFORMATION
  Report Type: Spontaneous
  Country: GB (occurrence: GB)
  Receive Date: 20150717
  Receipt Date: 20150717
  Transmission Date: 20151125
  Serious: Yes (Other)
  Sender: FDA-Public Use
  Company Number: GB-ASTRAZENECA-2015SE67638

PATIENT
  Age: 71 Year
  Sex: Female
  Weight: 74 kg

DRUGS (8)
  1. FORXIGA [Suspect]
     Active Substance: DAPAGLIFLOZIN
     Route: 048
     Dates: start: 20150522
  2. LEVOTHYROXINE. [Concomitant]
     Active Substance: LEVOTHYROXINE
     Indication: HYPOTHYROIDISM
     Dosage: 1 DF, EVERY DAY, EACH MORNING
     Dates: start: 20141128
  3. SITAGLIPTIN [Concomitant]
     Active Substance: SITAGLIPTIN
     Dates: start: 20150324, end: 20150522
  4. CYCLIZINE [Concomitant]
     Active Substance: CYCLIZINE
     Dates: start: 20150609, end: 20150616
  5. SIMVASTATIN. [Concomitant]
     Active Substance: SIMVASTATIN
     Dosage: 1 DF, EVERY DAY,AT NIGHT
     Dates: start: 20141128
  6. GLICLAZIDE [Concomitant]
     Active Substance: GLICLAZIDE
     Dosage: TWO IN MORNING, TWO IN EVENINGS
     Dates: start: 20150130
  7. METFORMIN [Concomitant]
     Active Substance: METFORMIN HYDROCHLORIDE
     Dates: start: 20141231
  8. RAMIPRIL. [Concomitant]
     Active Substance: RAMIPRIL
     Indication: HYPERTENSION
     Dosage: 1 DF,EVERY MORNING, EVERY DAY
     Dates: start: 20150225

REACTIONS (2)
  - Diabetic ketoacidosis [Recovered/Resolved]
  - Ketonuria [Recovered/Resolved]

NARRATIVE: CASE EVENT DATE: 20150630
